FAERS Safety Report 18910634 (Version 1)
Quarter: 2021Q1

REPORT INFORMATION
  Report Type: Spontaneous
  Country: US (occurrence: US)
  Receive Date: 20210218
  Receipt Date: 20210218
  Transmission Date: 20210420
  Serious: No
  Sender: FDA-Public Use
  Company Number: US-TAKEDA-2021TUS010247

PATIENT
  Sex: Female

DRUGS (1)
  1. TAKHZYRO [Suspect]
     Active Substance: LANADELUMAB-FLYO
     Indication: HEREDITARY ANGIOEDEMA
     Dosage: 300 MILLIGRAM, UNK
     Route: 058
     Dates: start: 201910

REACTIONS (5)
  - Injection site erythema [Unknown]
  - Injection site bruising [Unknown]
  - Injection site pain [Unknown]
  - Injection site mass [Unknown]
  - Wrong technique in product usage process [Unknown]
